FAERS Safety Report 6303370-2 (Version None)
Quarter: 2009Q3

REPORT INFORMATION
  Report Type: 
  Country: None (occurrence: None)
  Receive Date: 20090810
  Receipt Date: 20090731
  Transmission Date: 20100115
  Serious: No
  Sender: FDA-Public Use
  Company Number: US-B.I. PHARMACEUTICALS,INC./RIDGEFIELD-2009-BP-09062BP

PATIENT
  Age: 56 Year
  Sex: Female

DRUGS (2)
  1. ATROVENT HFA [Suspect]
     Indication: LUNG DISORDER
     Route: 055
     Dates: start: 20081001, end: 20090101
  2. OXYGEN [Concomitant]
     Indication: LUNG DISORDER
     Route: 055

REACTIONS (2)
  - DRUG INEFFECTIVE [None]
  - LOSS OF CONSCIOUSNESS [None]
